FAERS Safety Report 9559115 (Version 1)
Quarter: 2013Q3

REPORT INFORMATION
  Report Type: Spontaneous
  Country: US (occurrence: US)
  Receive Date: 20130927
  Receipt Date: 20130927
  Transmission Date: 20140515
  Serious: No
  Sender: FDA-Public Use
  Company Number: US-B.I. PHARMACEUTICALS,INC./RIDGEFIELD-2013-BI-29292BP

PATIENT
  Age: 67 Year
  Sex: Male
  Weight: 89 kg

DRUGS (1)
  1. SPIRIVA [Suspect]
     Indication: BRONCHITIS CHRONIC
     Dosage: 36 MCG
     Route: 055
     Dates: start: 20130912

REACTIONS (1)
  - Prescribed overdose [Not Recovered/Not Resolved]
